FAERS Safety Report 23771079 (Version 2)
Quarter: 2024Q3

REPORT INFORMATION
  Report Type: Spontaneous
  Country: US (occurrence: US)
  Receive Date: 20240423
  Receipt Date: 20240729
  Transmission Date: 20241017
  Serious: No
  Sender: PRINSTON PHARMACEUTICAL
  Company Number: US-PRINSTON PHARMACEUTICAL INC.-2024PRN00165

PATIENT
  Age: 70 Year
  Sex: Male
  Weight: 82.54 kg

DRUGS (9)
  1. NEBIVOLOL [Suspect]
     Active Substance: NEBIVOLOL
     Indication: Hypertension
     Dosage: 10 MG (2 TABLETS), 1X/DAY
     Route: 048
     Dates: start: 202403, end: 2024
  2. NEBIVOLOL [Suspect]
     Active Substance: NEBIVOLOL
     Dosage: 15 MG (3 TABLETS), 1X/DAY
     Route: 048
     Dates: start: 2024, end: 20240404
  3. SYNTHROID [Concomitant]
     Active Substance: LEVOTHYROXINE SODIUM
  4. FAMOTIDINE [Concomitant]
     Active Substance: FAMOTIDINE
  5. CRESTOR [Concomitant]
     Active Substance: ROSUVASTATIN CALCIUM
  6. TAMSULOSIN [Concomitant]
     Active Substance: TAMSULOSIN
  7. FINASTERIDE [Concomitant]
     Active Substance: FINASTERIDE
  8. KLONOPIN [Concomitant]
     Active Substance: CLONAZEPAM
  9. VITAMINS NOS [Concomitant]
     Active Substance: VITAMINS

REACTIONS (3)
  - Blood pressure increased [Recovered/Resolved]
  - Drug ineffective [Recovered/Resolved]
  - Product substitution issue [Recovered/Resolved]

NARRATIVE: CASE EVENT DATE: 20240301
